FAERS Safety Report 8346232-1 (Version None)
Quarter: 2012Q2

REPORT INFORMATION
  Report Type: 
  Country: None (occurrence: None)
  Receive Date: 20120509
  Receipt Date: 20120501
  Transmission Date: 20120825
  Serious: Yes (Other)
  Sender: FDA-Public Use
  Company Number: US-US-EMD SERONO, INC.-7103901

PATIENT
  Sex: Female

DRUGS (3)
  1. REBIF [Suspect]
     Route: 058
     Dates: start: 20120312
  2. REBIF [Suspect]
     Indication: MULTIPLE SCLEROSIS
     Dates: start: 20071013, end: 20111101
  3. MULTI-VITAMIN [Concomitant]
     Indication: PRODUCT USED FOR UNKNOWN INDICATION

REACTIONS (9)
  - UPPER RESPIRATORY TRACT INFECTION [None]
  - ARTHRITIS [None]
  - INTERVERTEBRAL DISC PROTRUSION [None]
  - TOOTH ABSCESS [None]
  - WHITE BLOOD CELL COUNT DECREASED [None]
  - HYPERVITAMINOSIS [None]
  - HERPES ZOSTER [None]
  - SENSORY LOSS [None]
  - URINARY TRACT INFECTION [None]
